FAERS Safety Report 7707697-9 (Version None)
Quarter: 2011Q3

REPORT INFORMATION
  Report Type: 
  Country: None (occurrence: None)
  Receive Date: 20110824
  Receipt Date: 20110815
  Transmission Date: 20111222
  Serious: Yes (Other)
  Sender: FDA-Public Use
  Company Number: US-ASTRAZENECA-2010SE41507

PATIENT
  Age: 63 Year
  Sex: Male

DRUGS (2)
  1. NEXIUM [Suspect]
     Route: 048
  2. CRESTOR [Suspect]
     Route: 048

REACTIONS (4)
  - MALAISE [None]
  - DEVICE OCCLUSION [None]
  - THROMBOSIS [None]
  - THROAT CANCER [None]
